FAERS Safety Report 4807442-0 (Version None)
Quarter: 2005Q4

REPORT INFORMATION
  Report Type: 
  Country: None (occurrence: None)
  Receive Date: 20051024
  Receipt Date: 20051009
  Transmission Date: 20060501
  Serious: Yes (Other)
  Sender: FDA-Public Use
  Company Number: US-KINGPHARMUSA00001-K200501349

PATIENT

DRUGS (2)
  1. SILVADENE CREAM 1% [Suspect]
  2. KEFLEX [Concomitant]

REACTIONS (1)
  - DEAFNESS [None]
